FAERS Safety Report 9280726 (Version 1)
Quarter: 2013Q2

REPORT INFORMATION
  Report Type: Spontaneous
  Country: US (occurrence: US)
  Receive Date: 20130509
  Receipt Date: 20130509
  Transmission Date: 20140414
  Serious: No
  Sender: FDA-Public Use
  Company Number: US-PFIZER INC-2013142928

PATIENT
  Sex: Male

DRUGS (2)
  1. LYRICA [Suspect]
     Indication: PROCEDURAL PAIN
     Dosage: 50 MG, 3X/DAY
  2. LYRICA [Suspect]
     Indication: NEURALGIA

REACTIONS (4)
  - Musculoskeletal chest pain [Unknown]
  - Dry mouth [Unknown]
  - Dyspepsia [Unknown]
  - Drug ineffective [Unknown]
